FAERS Safety Report 7059972-1 (Version None)
Quarter: 2010Q4

REPORT INFORMATION
  Report Type: 
  Country: None (occurrence: None)
  Receive Date: 20101025
  Receipt Date: 20101014
  Transmission Date: 20110411
  Serious: Yes (Other)
  Sender: FDA-Public Use
  Company Number: DE-ASTRAZENECA-2010SE49133

PATIENT
  Sex: Female

DRUGS (1)
  1. SEROQUEL [Suspect]
     Dosage: TOOK 20 TABLETS OF SEROQUEL 200 MG
     Route: 048

REACTIONS (2)
  - ANTICHOLINERGIC SYNDROME [None]
  - OVERDOSE [None]
